FAERS Safety Report 22140809 (Version 4)
Quarter: 2023Q2

REPORT INFORMATION
  Report Type: Spontaneous
  Country: GR (occurrence: GR)
  Receive Date: 20230327
  Receipt Date: 20230607
  Transmission Date: 20230721
  Serious: Yes (Hospitalization, Other)
  Sender: FDA-Public Use
  Company Number: GR-ABBVIE-4700475

PATIENT
  Age: 65 Year
  Sex: Male

DRUGS (1)
  1. ADALIMUMAB [Suspect]
     Active Substance: ADALIMUMAB
     Indication: Psoriasis
     Route: 058

REACTIONS (5)
  - Haemophagocytic lymphohistiocytosis [Unknown]
  - Atypical mycobacterial infection [Recovering/Resolving]
  - Mycobacterium avium complex infection [Recovering/Resolving]
  - Tuberculosis [Recovering/Resolving]
  - Encephalitis [Recovering/Resolving]
